FAERS Safety Report 6510469-4 (Version None)
Quarter: 2009Q4

REPORT INFORMATION
  Report Type: 
  Country: None (occurrence: None)
  Receive Date: 20091221
  Receipt Date: 20091221
  Transmission Date: 20100525
  Serious: Yes (Life-Threatening, Hospitalization)
  Sender: FDA-Public Use
  Company Number: None

PATIENT
  Age: 47 Year
  Sex: Female
  Weight: 49.8957 kg

DRUGS (1)
  1. PERFOROMIST [Suspect]
     Indication: EMPHYSEMA
     Dosage: 2 ML VIAL 2X A DAY    ONCE
     Dates: start: 20091124, end: 20091124

REACTIONS (1)
  - DYSPNOEA [None]
